FAERS Safety Report 6811109-7 (Version None)
Quarter: 2010Q2

REPORT INFORMATION
  Report Type: 
  Country: None (occurrence: None)
  Receive Date: 20100630
  Receipt Date: 20090408
  Transmission Date: 20101027
  Serious: No
  Sender: FDA-Public Use
  Company Number: US-PFIZER INC-2008098194

PATIENT
  Sex: Male
  Weight: 86 kg

DRUGS (8)
  1. NICOTROL [Suspect]
     Indication: SMOKING CESSATION THERAPY
     Dates: start: 20081023
  2. WARFARIN SODIUM [Concomitant]
  3. ACETYLSALICYLIC ACID [Concomitant]
  4. FOLIC ACID [Concomitant]
  5. VITAMIN B1 TAB [Concomitant]
  6. LOPRESSOR [Concomitant]
     Indication: HYPERTENSION
  7. VITAMIN C [Concomitant]
  8. NICOTINE [Concomitant]
     Dates: start: 20081023

REACTIONS (4)
  - COUGH [None]
  - DRUG INEFFECTIVE [None]
  - MEDICATION ERROR [None]
  - PRODUCT QUALITY ISSUE [None]
